FAERS Safety Report 25253077 (Version 1)
Quarter: 2025Q2

REPORT INFORMATION
  Report Type: Spontaneous
  Country: CA (occurrence: CA)
  Receive Date: 20250430
  Receipt Date: 20250430
  Transmission Date: 20250717
  Serious: Yes (Other)
  Sender: ORGANON
  Company Number: CA-ORGANON-O2504CAN002931

PATIENT
  Sex: Female

DRUGS (10)
  1. SINGULAIR [Suspect]
     Active Substance: MONTELUKAST SODIUM
     Indication: Chronic spontaneous urticaria
     Route: 065
  2. ANAKINRA [Suspect]
     Active Substance: ANAKINRA
     Indication: Chronic spontaneous urticaria
     Route: 058
  3. BILASTINE [Suspect]
     Active Substance: BILASTINE
     Indication: Chronic spontaneous urticaria
     Route: 065
  4. BRODALUMAB [Suspect]
     Active Substance: BRODALUMAB
     Indication: Chronic spontaneous urticaria
     Route: 058
  5. CETIRIZINE [Suspect]
     Active Substance: CETIRIZINE HYDROCHLORIDE
     Indication: Chronic spontaneous urticaria
     Route: 065
  6. COLCHICINE [Suspect]
     Active Substance: COLCHICINE
     Indication: Chronic spontaneous urticaria
     Route: 065
  7. FAMOTIDINE [Suspect]
     Active Substance: FAMOTIDINE
     Indication: Chronic spontaneous urticaria
     Route: 065
  8. HYDROXYZINE HYDROCHLORIDE [Suspect]
     Active Substance: HYDROXYZINE HYDROCHLORIDE
     Indication: Chronic spontaneous urticaria
     Route: 065
  9. OMALIZUMAB [Suspect]
     Active Substance: OMALIZUMAB
     Route: 065
  10. CYCLOSPORINE [Suspect]
     Active Substance: CYCLOSPORINE
     Indication: Chronic spontaneous urticaria
     Route: 065

REACTIONS (2)
  - Treatment failure [Unknown]
  - Off label use [Unknown]
